FAERS Safety Report 8852106 (Version 3)
Quarter: 2012Q4

REPORT INFORMATION
  Report Type: 
  Country: DE (occurrence: DE)
  Receive Date: 20121022
  Receipt Date: 20121109
  Transmission Date: 20130627
  Serious: Yes (Other)
  Sender: FDA-Public Use
  Company Number: DE-ASTRAZENECA-2012SE78846

PATIENT
  Sex: Male

DRUGS (1)
  1. SYMBICORT [Suspect]
     Indication: HAEMOPTYSIS
     Dosage: 160/4.5 UNKNOWN FREQUENCY
     Route: 055

REACTIONS (2)
  - Haemoptysis [Unknown]
  - Drug ineffective [Unknown]
